FAERS Safety Report 12944377 (Version 1)
Quarter: 2016Q4

REPORT INFORMATION
  Report Type: Spontaneous
  Country: FR (occurrence: FR)
  Receive Date: 20161115
  Receipt Date: 20161115
  Transmission Date: 20170207
  Serious: Yes (Hospitalization)
  Sender: FDA-Public Use
  Company Number: FR-JNJFOC-20161110566

PATIENT
  Age: 30 Year
  Sex: Male

DRUGS (4)
  1. LEPTICUR [Concomitant]
     Active Substance: TROPATEPINE HYDROCHLORIDE
     Dosage: 1 DF DIALY
     Route: 048
  2. LOXAPAC [Concomitant]
     Active Substance: LOXAPINE SUCCINATE
     Route: 048
  3. RISPERDAL CONSTA [Suspect]
     Active Substance: RISPERIDONE
     Indication: SCHIZOPHRENIA
     Dosage: 1.6667 MG (25 MG, 1 IN 15 DAYS)
     Route: 030
     Dates: start: 201608, end: 201609
  4. VALIUM [Concomitant]
     Active Substance: DIAZEPAM
     Route: 048

REACTIONS (1)
  - Pulmonary embolism [Recovered/Resolved with Sequelae]

NARRATIVE: CASE EVENT DATE: 20160917
